FAERS Safety Report 13290309 (Version 1)
Quarter: 2017Q1

REPORT INFORMATION
  Report Type: Spontaneous
  Country: US (occurrence: US)
  Receive Date: 20170303
  Receipt Date: 20170303
  Transmission Date: 20170428
  Serious: No
  Sender: FDA-Public Use
  Company Number: US-TEVA-743622ACC

PATIENT
  Sex: Male

DRUGS (6)
  1. COPAXONE [Suspect]
     Active Substance: GLATIRAMER ACETATE
     Indication: MULTIPLE SCLEROSIS
     Dates: start: 2008
  2. BRILINTA [Concomitant]
     Active Substance: TICAGRELOR
  3. COPAXONE [Concomitant]
     Active Substance: GLATIRAMER ACETATE
  4. NUVIGIL [Concomitant]
     Active Substance: ARMODAFINIL
  5. ATORVASTATIN [Concomitant]
     Active Substance: ATORVASTATIN
  6. METOPROLOL. [Concomitant]
     Active Substance: METOPROLOL

REACTIONS (1)
  - Blood pressure increased [Unknown]
